FAERS Safety Report 6288011-5 (Version None)
Quarter: 2009Q3

REPORT INFORMATION
  Report Type: 
  Country: None (occurrence: None)
  Receive Date: 20090729
  Receipt Date: 20090721
  Transmission Date: 20100115
  Serious: Yes (Other)
  Sender: FDA-Public Use
  Company Number: US-ROCHE-641540

PATIENT
  Sex: Male
  Weight: 118.4 kg

DRUGS (3)
  1. PEGASYS [Suspect]
     Indication: HEPATITIS C
     Route: 058
     Dates: start: 20090123, end: 20090611
  2. RIBAVIRIN [Suspect]
     Indication: HEPATITIS C
     Route: 048
     Dates: start: 20090123, end: 20090611
  3. TOPROL-XL [Concomitant]
     Indication: HYPERTENSION
     Dosage: TAKEN EVERYDAY.
     Route: 048

REACTIONS (1)
  - INTERSTITIAL LUNG DISEASE [None]
